FAERS Safety Report 13572932 (Version 1)
Quarter: 2017Q2

REPORT INFORMATION
  Report Type: Spontaneous
  Country: US (occurrence: US)
  Receive Date: 20170523
  Receipt Date: 20170523
  Transmission Date: 20170830
  Serious: No
  Sender: FDA-Public Use
  Company Number: US-GLAXOSMITHKLINE-US2017GSK074996

PATIENT
  Sex: Female

DRUGS (3)
  1. IPRATROPIUM BROMIDE NEBULISER SOLUTION [Suspect]
     Active Substance: IPRATROPIUM BROMIDE
  2. SEREVENT DISKUS [Concomitant]
     Active Substance: SALMETEROL XINAFOATE
  3. ANORO ELLIPTA [Suspect]
     Active Substance: UMECLIDINIUM BROMIDE\VILANTEROL TRIFENATATE
     Indication: CHRONIC OBSTRUCTIVE PULMONARY DISEASE
     Dosage: UNK
     Dates: start: 201701

REACTIONS (1)
  - Labelled drug-drug interaction medication error [Unknown]
